FAERS Safety Report 21948555 (Version 1)
Quarter: 2023Q1

REPORT INFORMATION
  Report Type: Spontaneous
  Country: GB (occurrence: GB)
  Receive Date: 20230203
  Receipt Date: 20230203
  Transmission Date: 20230418
  Serious: Yes (Life-Threatening, Disabling, Other)
  Sender: FDA-Public Use
  Company Number: GB-MHRA-MED-202301261847017880-MLNWV

PATIENT

DRUGS (3)
  1. ZOLADEX [Suspect]
     Active Substance: GOSERELIN ACETATE
     Indication: Adverse drug reaction
     Dosage: 3.6 MG, MONTHLY
     Route: 065
     Dates: start: 20220922, end: 20230118
  2. ZOLADEX [Suspect]
     Active Substance: GOSERELIN ACETATE
     Indication: Adverse drug reaction
     Dosage: UNK
     Route: 065
  3. TIBOLONE [Concomitant]
     Active Substance: TIBOLONE
     Indication: Hormone replacement therapy
     Dosage: UNK
     Route: 065
     Dates: start: 20220920, end: 20230103

REACTIONS (2)
  - Suicidal ideation [Not Recovered/Not Resolved]
  - Medication error [Unknown]

NARRATIVE: CASE EVENT DATE: 20230101
